FAERS Safety Report 5937150-4 (Version None)
Quarter: 2008Q4

REPORT INFORMATION
  Report Type: 
  Country: None (occurrence: None)
  Receive Date: 20081031
  Receipt Date: 20081029
  Transmission Date: 20090506
  Serious: Yes (Other)
  Sender: FDA-Public Use
  Company Number: US-BRISTOL-MYERS SQUIBB COMPANY-14388094

PATIENT

DRUGS (4)
  1. COUMADIN [Suspect]
     Route: 048
  2. ELOXATIN [Suspect]
     Route: 042
  3. FLUOROURACIL [Concomitant]
     Route: 065
  4. LEUCOVORIN CALCIUM [Concomitant]
     Route: 065

REACTIONS (1)
  - PLATELET COUNT DECREASED [None]
